FAERS Safety Report 14009899 (Version 1)
Quarter: 2017Q3

REPORT INFORMATION
  Report Type: Spontaneous
  Country: GR (occurrence: GR)
  Receive Date: 20170925
  Receipt Date: 20170925
  Transmission Date: 20171128
  Serious: Yes (Life-Threatening, Hospitalization)
  Sender: FDA-Public Use
  Company Number: GR-ELI_LILLY_AND_COMPANY-GR201709007576

PATIENT
  Age: 21 Year
  Sex: Male
  Weight: 40 kg

DRUGS (3)
  1. SEROXAT [Concomitant]
     Active Substance: PAROXETINE HYDROCHLORIDE
     Indication: PHOBIA
     Dosage: 10 MG, DAILY
     Route: 065
     Dates: start: 2015
  2. TAVOR (LORAZEPAM) [Concomitant]
     Active Substance: LORAZEPAM
     Indication: AGGRESSION
     Dosage: 2.5 MG, BID
     Route: 065
     Dates: start: 20170615
  3. ZYPREXA [Suspect]
     Active Substance: OLANZAPINE
     Indication: AGGRESSION
     Dosage: 10 MG, TID
     Route: 065
     Dates: start: 20170427

REACTIONS (6)
  - Decreased appetite [Unknown]
  - Off label use [Unknown]
  - Overdose [Unknown]
  - Agoraphobia [Unknown]
  - Weight decreased [Unknown]
  - Leukoencephalopathy [Unknown]

NARRATIVE: CASE EVENT DATE: 20170427
